FAERS Safety Report 25331461 (Version 2)
Quarter: 2025Q2

REPORT INFORMATION
  Report Type: Spontaneous
  Country: CN (occurrence: CN)
  Receive Date: 20250519
  Receipt Date: 20250612
  Transmission Date: 20250717
  Serious: Yes (Other)
  Sender: OTSUKA
  Company Number: CN-MMM-Otsuka-CJ96MPV4

PATIENT
  Age: 87 Year
  Sex: Male

DRUGS (2)
  1. TOLVAPTAN [Suspect]
     Active Substance: TOLVAPTAN
     Indication: Hepatic cancer
     Dosage: 0.5 DF, DAILY (7.5 MG/DAY)
     Route: 048
     Dates: start: 20250501, end: 20250503
  2. TOLVAPTAN [Suspect]
     Active Substance: TOLVAPTAN
     Indication: Ascites

REACTIONS (3)
  - Liver injury [Recovering/Resolving]
  - Wrong technique in product usage process [Unknown]
  - Product use in unapproved indication [Unknown]

NARRATIVE: CASE EVENT DATE: 20250501
